FAERS Safety Report 20862370 (Version 2)
Quarter: 2022Q2

REPORT INFORMATION
  Report Type: Spontaneous
  Country: BR (occurrence: BR)
  Receive Date: 20220523
  Receipt Date: 20220601
  Transmission Date: 20220721
  Serious: Yes (Other)
  Sender: FDA-Public Use
  Company Number: BR-TAKEDA-2022TUS033220

PATIENT
  Sex: Female
  Weight: 53 kg

DRUGS (2)
  1. LISDEXAMFETAMINE DIMESYLATE [Suspect]
     Active Substance: LISDEXAMFETAMINE DIMESYLATE
     Indication: Attention deficit hyperactivity disorder
     Dosage: 70 MILLIGRAM, QD
     Route: 065
  2. LISDEXAMFETAMINE DIMESYLATE [Suspect]
     Active Substance: LISDEXAMFETAMINE DIMESYLATE
     Dosage: 50 MILLIGRAM, QD
     Route: 065
     Dates: start: 2020

REACTIONS (9)
  - Suicidal ideation [Recovered/Resolved]
  - Therapy interrupted [Recovered/Resolved]
  - Hypersomnia [Recovered/Resolved]
  - Discouragement [Recovered/Resolved]
  - Asthenia [Recovered/Resolved]
  - Headache [Recovered/Resolved]
  - Depressed mood [Recovered/Resolved]
  - Crying [Recovered/Resolved]
  - Product availability issue [Recovered/Resolved]

NARRATIVE: CASE EVENT DATE: 20200101
